FAERS Safety Report 22043379 (Version 1)
Quarter: 2023Q1

REPORT INFORMATION
  Report Type: Spontaneous
  Country: DE (occurrence: DE)
  Receive Date: 20230228
  Receipt Date: 20230228
  Transmission Date: 20230417
  Serious: Yes (Other)
  Sender: FDA-Public Use
  Company Number: DE-ALKEM LABORATORIES LIMITED-DE-ALKEM-2023-00058

PATIENT
  Age: 63 Year
  Sex: Female

DRUGS (1)
  1. CEFUROXIME AXETIL [Suspect]
     Active Substance: CEFUROXIME AXETIL
     Indication: Productive cough
     Dosage: 500 MILLIGRAM (FILM-COATED TABLET)  EVERY 2 DAY
     Route: 065
     Dates: start: 20221224, end: 20230103

REACTIONS (8)
  - Cardiac failure [Unknown]
  - Burning sensation [Unknown]
  - Condition aggravated [Not Recovered/Not Resolved]
  - Cardiac disorder [Unknown]
  - Hepatic pain [Unknown]
  - Palpitations [Recovering/Resolving]
  - Pyrexia [Recovering/Resolving]
  - Pain [Unknown]

NARRATIVE: CASE EVENT DATE: 20221226
